FAERS Safety Report 11092503 (Version 1)
Quarter: 2015Q2

REPORT INFORMATION
  Report Type: Report from Study
  Country: JP (occurrence: None)
  Receive Date: 20150504
  Receipt Date: 20150504
  Transmission Date: 20150821
  Serious: Yes (Other)
  Sender: FDA-Public Use
  Company Number: 2008JP000024

PATIENT
  Age: 37 Year
  Sex: Female
  Weight: 47 kg

DRUGS (17)
  1. MERISLON (BETAHISTINE MESILATE) [Concomitant]
  2. TACROLIMUS CAPSULES (TACROLIMUS) CAPSULE [Suspect]
     Active Substance: TACROLIMUS
     Indication: LUPUS NEPHRITIS
     Route: 048
     Dates: start: 20070206, end: 20070305
  3. PRIMPERAN [Concomitant]
     Active Substance: METOCLOPRAMIDE HYDROCHLORIDE
  4. PL [Concomitant]
     Active Substance: ACETAMINOPHEN\CAFFEINE\PROMETHAZINE\SALICYLAMIDE
  5. FLOMOX (CEFCAPENE PIVOXIL HYDROCHLORIDE) [Concomitant]
  6. ASVERIN (TIPEPIDINE HIBENZATE) [Concomitant]
     Active Substance: TIPEPIDINE HIBENZATE
  7. BIO-THREE (CLOSTRIDIUM BUTYRICUM COMBINED DRUG) [Concomitant]
  8. FLAVERIC (BENPROPERINE PHOSPHATE) [Concomitant]
  9. PREDNISOLONE (PREDNISOLONE) PER ORAL NOS [Suspect]
     Active Substance: PREDNISOLONE
     Indication: LUPUS NEPHRITIS
     Route: 048
     Dates: end: 20110426
  10. ZANTAC [Concomitant]
     Active Substance: RANITIDINE HYDROCHLORIDE
  11. ALFAROL [Concomitant]
     Active Substance: ALFACALCIDOL
  12. ADOFEED (FLURBIPROFEN) [Concomitant]
  13. VEEN-F (CALCIUM CHLORIDE, MAGNESIUM CHLORIDE, POTASSIUM CHLORIDE, SODIUM ACETATE, SODIUM CHLORIDE) [Concomitant]
  14. CYTOTEC [Suspect]
     Active Substance: MISOPROSTOL
     Indication: PROPHYLAXIS
     Route: 048
     Dates: end: 20100202
  15. SELBEX (TEPRENONE) [Concomitant]
     Active Substance: TEPRENONE
  16. MUCODYNE (CARBOCISTEINE) [Concomitant]
     Active Substance: CARBOCYSTEINE
  17. GASTER D (FAMOTIDINE) [Concomitant]

REACTIONS (11)
  - Rib fracture [None]
  - Dizziness [None]
  - Diarrhoea [None]
  - Hepatic function abnormal [None]
  - Blood alkaline phosphatase increased [None]
  - Eczema [None]
  - Aspartate aminotransferase increased [None]
  - Alanine aminotransferase increased [None]
  - Blood lactate dehydrogenase increased [None]
  - Gamma-glutamyltransferase increased [None]
  - Upper respiratory tract inflammation [None]

NARRATIVE: CASE EVENT DATE: 20070403
